FAERS Safety Report 4694186-1 (Version None)
Quarter: 2005Q2

REPORT INFORMATION
  Report Type: 
  Country: None (occurrence: None)
  Receive Date: 20050614
  Receipt Date: 20050217
  Transmission Date: 20051028
  Serious: No
  Sender: FDA-Public Use
  Company Number: USA050291084

PATIENT
  Age: 57 Year
  Sex: Male

DRUGS (3)
  1. CIALIS [Suspect]
     Indication: ERECTILE DYSFUNCTION
     Dosage: 10 MG
     Dates: start: 20050209, end: 20050209
  2. MAXALT(RIZATRIPTAN) [Concomitant]
  3. INDERAL [Concomitant]

REACTIONS (2)
  - BACK PAIN [None]
  - MYALGIA [None]
